FAERS Safety Report 6545699-9 (Version None)
Quarter: 2010Q1

REPORT INFORMATION
  Report Type: 
  Country: None (occurrence: None)
  Receive Date: 20100121
  Receipt Date: 20100114
  Transmission Date: 20100710
  Serious: Yes (Hospitalization)
  Sender: FDA-Public Use
  Company Number: PHHO2009US15649

PATIENT
  Sex: Male
  Weight: 72.8 kg

DRUGS (3)
  1. AFINITOR [Suspect]
     Indication: SARCOMA
     Dosage: 10MG/ DAY
     Dates: start: 20090810, end: 20100111
  2. ATIVAN [Concomitant]
  3. CELEXA [Concomitant]

REACTIONS (7)
  - ABDOMINAL PAIN UPPER [None]
  - DYSPNOEA [None]
  - GASTROENTERITIS [None]
  - MALAISE [None]
  - NAUSEA [None]
  - PYREXIA [None]
  - VOMITING [None]
